FAERS Safety Report 16243913 (Version 1)
Quarter: 2019Q2

REPORT INFORMATION
  Report Type: Spontaneous
  Country: US (occurrence: US)
  Receive Date: 20190425
  Receipt Date: 20190425
  Transmission Date: 20190711
  Serious: Yes (Other)
  Sender: FDA-Public Use
  Company Number: None

PATIENT
  Age: 54 Year
  Sex: Female

DRUGS (1)
  1. FAT EMULSION NOS [Suspect]
     Active Substance: EGG PHOSPHOLIPIDS\SAFFLOWER OIL\SOYBEAN OIL
     Route: 042
     Dates: start: 20190418, end: 20190418

REACTIONS (2)
  - Drug hypersensitivity [None]
  - Erythema multiforme [None]

NARRATIVE: CASE EVENT DATE: 20190418
